FAERS Safety Report 7425509-8 (Version None)
Quarter: 2011Q2

REPORT INFORMATION
  Report Type: 
  Country: None (occurrence: None)
  Receive Date: 20110420
  Receipt Date: 20110414
  Transmission Date: 20111010
  Serious: Yes (Death, Hospitalization, Other)
  Sender: FDA-Public Use
  Company Number: NO-PFIZER INC-2011082791

PATIENT
  Age: 62 Year
  Sex: Male

DRUGS (15)
  1. DUPHALAC [Concomitant]
     Route: 048
  2. SELO-ZOK [Concomitant]
     Route: 048
  3. NEURONTIN [Concomitant]
     Route: 048
  4. RIVOTRIL [Concomitant]
     Route: 048
  5. BUPRENORPHINE [Concomitant]
     Dosage: 20  A?G/H
     Route: 062
  6. ZOLOFT [Suspect]
     Indication: DEPRESSION
  7. SIMVASTATIN [Concomitant]
     Route: 048
  8. TRIATEC [Concomitant]
     Route: 048
  9. PLAVIX [Concomitant]
     Route: 048
  10. KEPPRA [Concomitant]
     Route: 048
  11. ANTABUSE [Concomitant]
  12. LANSOPRAZOLE [Concomitant]
  13. FLUNIPAM [Concomitant]
     Route: 048
  14. DIAZEPAM [Concomitant]
     Route: 048
  15. TRUXAL [Concomitant]
     Dosage: 25 MG + 25 MG + 50 MG PER DAY
     Route: 048

REACTIONS (3)
  - SUDDEN DEATH [None]
  - DYSARTHRIA [None]
  - MYALGIA [None]
